FAERS Safety Report 18459618 (Version 1)
Quarter: 2020Q4

REPORT INFORMATION
  Report Type: Spontaneous
  Country: JP (occurrence: JP)
  Receive Date: 20201103
  Receipt Date: 20201103
  Transmission Date: 20210114
  Serious: Yes (Hospitalization, Disabling)
  Sender: FDA-Public Use
  Company Number: JP-ASTRAZENECA-2020SF30864

PATIENT
  Age: 28266 Day
  Sex: Male
  Weight: 50 kg

DRUGS (13)
  1. TAGRISSO [Suspect]
     Active Substance: OSIMERTINIB
     Indication: NON-SMALL CELL LUNG CANCER
     Route: 048
     Dates: start: 20200915, end: 20201001
  2. OXYCODONE [Suspect]
     Active Substance: OXYCODONE
     Indication: METASTASES TO BONE
     Route: 048
     Dates: start: 20200903, end: 20200929
  3. DENOTAS [Concomitant]
     Active Substance: CALCIUM CARBONATE\CHOLECALCIFEROL\MAGNESIUM CARBONATE
     Indication: METASTASES TO BONE
     Route: 048
     Dates: start: 20200914
  4. CAMOSTAT MESILATE [Concomitant]
     Active Substance: CAMOSTAT MESYLATE
     Route: 048
  5. AMLODIPINE [Concomitant]
     Active Substance: AMLODIPINE BESYLATE
     Indication: HYPERTENSION
     Route: 048
  6. TAKECAB [Concomitant]
     Active Substance: VONOPRAZAN FUMARATE
     Route: 048
  7. OXINORM [Concomitant]
     Indication: METASTASES TO BONE
     Dosage: 2.5MG AS REQUIRED
     Route: 048
     Dates: start: 20200914
  8. MAGMITT [Concomitant]
     Active Substance: MAGNESIUM OXIDE
     Indication: CONSTIPATION
     Route: 048
  9. NOVAMIN [Concomitant]
     Indication: METASTASES TO BONE
     Dosage: 5.0MG AS REQUIRED
     Route: 048
     Dates: start: 20200914
  10. PANTETHINE [Concomitant]
     Active Substance: PANTETHINE
     Route: 048
  11. RIBOFLAVIN BUTYRATE [Concomitant]
     Route: 048
  12. ZOLPIDEM TARTRATE. [Concomitant]
     Active Substance: ZOLPIDEM TARTRATE
     Indication: INSOMNIA
     Route: 048
  13. SYMPROIC [Concomitant]
     Active Substance: NALDEMEDINE
     Indication: CONSTIPATION
     Route: 048
     Dates: start: 20200917

REACTIONS (4)
  - Stomatitis [Unknown]
  - Inappropriate antidiuretic hormone secretion [Recovered/Resolved]
  - Taste disorder [Recovering/Resolving]
  - Parosmia [Recovering/Resolving]

NARRATIVE: CASE EVENT DATE: 20200923
